FAERS Safety Report 22650848 (Version 1)
Quarter: 2023Q2

REPORT INFORMATION
  Report Type: Spontaneous
  Country: US (occurrence: US)
  Receive Date: 20230628
  Receipt Date: 20230628
  Transmission Date: 20230721
  Serious: Yes (Other)
  Sender: FDA-Public Use
  Company Number: US-SA-SAC20230627000277

PATIENT
  Age: 71 Year
  Sex: Female

DRUGS (17)
  1. DUPIXENT [Suspect]
     Active Substance: DUPILUMAB
     Indication: Dermatitis
     Dosage: 300 MG, QOW
     Route: 058
     Dates: start: 20221228
  2. BENADRYL ALLERGY [Concomitant]
     Active Substance: DIPHENHYDRAMINE HYDROCHLORIDE
  3. CALCIUM [Concomitant]
     Active Substance: CALCIUM
  4. CLINDAMYCIN [Concomitant]
     Active Substance: CLINDAMYCIN
  5. ELIQUIS [Concomitant]
     Active Substance: APIXABAN
  6. ESTRACE [Concomitant]
     Active Substance: ESTRADIOL
  7. FIBER [Concomitant]
  8. IPRATROPIUM [Concomitant]
     Active Substance: IPRATROPIUM
  9. KETOCONAZOLE [Concomitant]
     Active Substance: KETOCONAZOLE
  10. TAGRISSO [Concomitant]
     Active Substance: OSIMERTINIB
  11. TYLENOL [Concomitant]
     Active Substance: ACETAMINOPHEN
  12. VALTREX [Concomitant]
     Active Substance: VALACYCLOVIR HYDROCHLORIDE
  13. ZINC [Concomitant]
     Active Substance: ZINC
  14. ZYRTEC [Concomitant]
     Active Substance: CETIRIZINE HYDROCHLORIDE
  15. BETAMETHASONE [Concomitant]
     Active Substance: BETAMETHASONE
  16. AMITRIPTYLINE [Concomitant]
     Active Substance: AMITRIPTYLINE
  17. LEVOTHYROXINE [Concomitant]
     Active Substance: LEVOTHYROXINE

REACTIONS (4)
  - Cataract [Unknown]
  - Pustule [Not Recovered/Not Resolved]
  - Dermatitis [Not Recovered/Not Resolved]
  - Product use in unapproved indication [Unknown]

NARRATIVE: CASE EVENT DATE: 20221228
